FAERS Safety Report 14452302 (Version 1)
Quarter: 2018Q1

REPORT INFORMATION
  Report Type: Spontaneous
  Country: US (occurrence: US)
  Receive Date: 20180129
  Receipt Date: 20180129
  Transmission Date: 20180509
  Serious: No
  Sender: FDA-Public Use
  Company Number: US-BIOGEN-2018BI00514239

PATIENT
  Sex: Female

DRUGS (1)
  1. TECFIDERA [Suspect]
     Active Substance: DIMETHYL FUMARATE
     Indication: PRODUCT USED FOR UNKNOWN INDICATION
     Route: 048
     Dates: start: 20160608, end: 20171130

REACTIONS (8)
  - Cognitive disorder [Recovered/Resolved]
  - Nerve injury [Unknown]
  - Dystonia [Not Recovered/Not Resolved]
  - Thinking abnormal [Recovered/Resolved]
  - Vomiting [Recovered/Resolved]
  - Aphasia [Recovered/Resolved]
  - Drug effect decreased [Unknown]
  - Feeling drunk [Recovered/Resolved]
